FAERS Safety Report 5474003-2 (Version None)
Quarter: 2007Q3

REPORT INFORMATION
  Report Type: 
  Country: None (occurrence: None)
  Receive Date: 20070830
  Receipt Date: 20070618
  Transmission Date: 20080115
  Serious: Yes (Other)
  Sender: FDA-Public Use
  Company Number: 243200

PATIENT
  Age: 47 Year
  Sex: Female
  Weight: 91.6 kg

DRUGS (1)
  1. XOLAIR [Suspect]
     Indication: ASTHMA
     Dosage: 375 MG, Q2W
     Dates: start: 20070312

REACTIONS (2)
  - INDURATION [None]
  - URTICARIA [None]
